FAERS Safety Report 4475285-6 (Version None)
Quarter: 2004Q4

REPORT INFORMATION
  Report Type: 
  Country: None (occurrence: None)
  Receive Date: 20041015
  Receipt Date: 20040819
  Transmission Date: 20050328
  Serious: Yes (Hospitalization)
  Sender: FDA-Public Use
  Company Number: PHFR2004GB03254

PATIENT
  Age: 34 Year
  Sex: Male

DRUGS (2)
  1. CLOZARIL [Suspect]
     Indication: SCHIZOPHRENIA
     Route: 048
     Dates: start: 20011227, end: 20040815
  2. CLOZARIL [Suspect]
     Dosage: 150MG/MANE 175MG
     Route: 048
     Dates: start: 20040817, end: 20040818

REACTIONS (3)
  - DIZZINESS [None]
  - HYPERHIDROSIS [None]
  - MEDICATION ERROR [None]
